FAERS Safety Report 8057208-6 (Version None)
Quarter: 2012Q1

REPORT INFORMATION
  Report Type: 
  Country: None (occurrence: None)
  Receive Date: 20120119
  Receipt Date: 20120110
  Transmission Date: 20120608
  Serious: Yes (Other)
  Sender: FDA-Public Use
  Company Number: PHFR2012GB000591

PATIENT
  Sex: Male
  Weight: 4.535 kg

DRUGS (1)
  1. CLOZARIL [Suspect]
     Indication: SCHIZOPHRENIA
     Dosage: 125 MG, DAILY
     Route: 064
     Dates: start: 19990101

REACTIONS (4)
  - FOETAL EXPOSURE DURING PREGNANCY [None]
  - UMBILICAL CORD AROUND NECK [None]
  - CYANOSIS [None]
  - DYSPNOEA [None]
